FAERS Safety Report 24127092 (Version 2)
Quarter: 2025Q1

REPORT INFORMATION
  Report Type: Report from Study
  Country: DE (occurrence: DE)
  Receive Date: 20240723
  Receipt Date: 20250320
  Transmission Date: 20250409
  Serious: Yes (Hospitalization, Other)
  Sender: NORDIC PHARMA
  Company Number: DE-BRISTOL-MYERS SQUIBB COMPANY-2024-076255

PATIENT
  Age: 83 Year
  Sex: Female

DRUGS (13)
  1. METHOTREXATE [Suspect]
     Active Substance: METHOTREXATE
     Indication: Product used for unknown indication
     Route: 065
  2. TOREM [TORASEMIDE] [TORASEMIDE] [Concomitant]
     Indication: Product used for unknown indication
  3. LEVOTHYROXINE [Concomitant]
     Active Substance: LEVOTHYROXINE
     Indication: Product used for unknown indication
  4. CANDESARTAN [CANDESARTAN] [Concomitant]
     Indication: Product used for unknown indication
  5. FOLIC ACID [FOLIC ACID] [Concomitant]
     Indication: Product used for unknown indication
  6. PROLIA [DENOSUMAB] [Concomitant]
     Indication: Product used for unknown indication
  7. DEKRISTOL [COLECALCIFEROL] [Concomitant]
     Indication: Product used for unknown indication
  8. TILIDIN [NALOXONE HYDROCHLORIDE, TILIDINE HYDROCHLORIDE] [Concomitant]
     Indication: Product used for unknown indication
  9. CELECOXIB [Concomitant]
     Active Substance: CELECOXIB
     Indication: Product used for unknown indication
  10. NOVALGIN [CAFFEINE;PARACETAMOL;PROPYPHENAZONE] [CAFFEINE, PARACETAM... [Concomitant]
     Indication: Product used for unknown indication
  11. MACROGOL [MACROGOL] [Concomitant]
     Indication: Product used for unknown indication
  12. ATROVENT [IPRATROPIUM BROMIDE] [Concomitant]
     Indication: Product used for unknown indication
  13. ORENCIA [Concomitant]
     Active Substance: ABATACEPT
     Indication: Product used for unknown indication
     Route: 065
     Dates: end: 20240225

REACTIONS (3)
  - Left ventricular hypertrophy [Recovered/Resolved]
  - Cardiac failure [Recovered/Resolved]
  - Iron deficiency anaemia [Not Recovered/Not Resolved]

NARRATIVE: CASE EVENT DATE: 20240201
